FAERS Safety Report 9323928 (Version 1)
Quarter: 2013Q2

REPORT INFORMATION
  Report Type: Spontaneous
  Country: JP (occurrence: JP)
  Receive Date: 20130603
  Receipt Date: 20130603
  Transmission Date: 20140414
  Serious: Yes (Hospitalization, Other)
  Sender: FDA-Public Use
  Company Number: JP-JNJFOC-20130509527

PATIENT
  Age: 14 Month
  Sex: Female

DRUGS (7)
  1. ZYRTEC [Suspect]
     Route: 048
  2. ZYRTEC [Suspect]
     Indication: PRODUCT USED FOR UNKNOWN INDICATION
     Route: 048
  3. CEFDITOREN PIVOXIL [Suspect]
     Indication: COUGH
     Route: 048
  4. CEFDITOREN PIVOXIL [Suspect]
     Indication: RHINORRHOEA
     Route: 048
  5. CLEMASTINE FUMARATE [Suspect]
     Indication: PRODUCT USED FOR UNKNOWN INDICATION
     Route: 048
  6. BETAMETHASONE [Concomitant]
     Route: 065
  7. MEQUITAZINE [Concomitant]
     Route: 048

REACTIONS (7)
  - Encephalopathy [Recovered/Resolved with Sequelae]
  - Grand mal convulsion [Recovered/Resolved with Sequelae]
  - Hypoglycaemia [Recovered/Resolved with Sequelae]
  - Carnitine deficiency [Recovered/Resolved with Sequelae]
  - Pyrexia [Recovered/Resolved with Sequelae]
  - Hypophagia [Recovered/Resolved with Sequelae]
  - Asthenia [Recovered/Resolved with Sequelae]
